FAERS Safety Report 12432215 (Version 1)
Quarter: 2016Q2

REPORT INFORMATION
  Report Type: Spontaneous
  Country: US (occurrence: US)
  Receive Date: 20160603
  Receipt Date: 20160603
  Transmission Date: 20160815
  Serious: Yes (Hospitalization)
  Sender: FDA-Public Use
  Company Number: US-ACTAVIS-2016-11313

PATIENT
  Age: 46 Year
  Sex: Female

DRUGS (3)
  1. DEPAKOTE [Concomitant]
     Active Substance: DIVALPROEX SODIUM
     Indication: BIPOLAR DISORDER
     Dosage: 1500 MG, ONCE DAILY AT NIGHT
     Route: 048
  2. ALPRAZOLAM (AELLC) [Suspect]
     Active Substance: ALPRAZOLAM
     Indication: ANXIETY
     Dosage: 1 TABLET, TWICE DAILY MORNING AND EVENING
     Route: 048
     Dates: end: 201605
  3. DEPAKOTE [Concomitant]
     Active Substance: DIVALPROEX SODIUM
     Indication: MIGRAINE

REACTIONS (7)
  - Drug ineffective [Recovering/Resolving]
  - Panic attack [Recovering/Resolving]
  - Drug withdrawal syndrome [Recovering/Resolving]
  - Dehydration [Recovering/Resolving]
  - Hyperhidrosis [Recovering/Resolving]
  - Migraine [Recovering/Resolving]
  - Insomnia [Recovering/Resolving]

NARRATIVE: CASE EVENT DATE: 201603
